FAERS Safety Report 23163024 (Version 1)
Quarter: 2023Q4

REPORT INFORMATION
  Report Type: Spontaneous
  Country: CN (occurrence: None)
  Receive Date: 20231109
  Receipt Date: 20231109
  Transmission Date: 20240110
  Serious: Yes (Other)
  Sender: FDA-Public Use
  Company Number: 2023A251436

PATIENT
  Age: 22809 Day
  Sex: Female
  Weight: 63 kg

DRUGS (4)
  1. FASLODEX [Suspect]
     Active Substance: FULVESTRANT
     Indication: Neoplasm malignant
     Route: 030
     Dates: start: 20230911, end: 20230911
  2. FASLODEX [Suspect]
     Active Substance: FULVESTRANT
     Indication: Endocrine disorder
     Route: 030
     Dates: start: 20230911, end: 20230911
  3. ABEMACICLIB [Suspect]
     Active Substance: ABEMACICLIB
     Indication: Neoplasm malignant
     Route: 048
     Dates: start: 20230911, end: 20231025
  4. ABEMACICLIB [Suspect]
     Active Substance: ABEMACICLIB
     Indication: Endocrine disorder
     Route: 048
     Dates: start: 20230911, end: 20231025

REACTIONS (1)
  - Myelosuppression [Recovering/Resolving]

NARRATIVE: CASE EVENT DATE: 20231024
